FAERS Safety Report 6249722-0 (Version None)
Quarter: 2009Q2

REPORT INFORMATION
  Report Type: 
  Country: None (occurrence: None)
  Receive Date: 20090629
  Receipt Date: 20090624
  Transmission Date: 20091009
  Serious: Yes (Hospitalization)
  Sender: FDA-Public Use
  Company Number: FR-BRISTOL-MYERS SQUIBB COMPANY-14677637

PATIENT
  Age: 74 Year
  Sex: Female

DRUGS (4)
  1. ELISOR TABS 20 MG [Suspect]
     Indication: HYPERCHOLESTEROLAEMIA
     Dosage: 1 DF = 1 TABS
     Route: 048
     Dates: start: 20081213
  2. GLUCOPHAGE [Suspect]
     Indication: DIABETES MELLITUS
     Route: 048
     Dates: start: 20081213
  3. DEPAKOTE [Suspect]
     Dosage: DEPAKOTE 500 MG;1 DF = 1 TABS;DOSE DECREASED TO 250 MG SINCE 09-JAN-2009. 0.5 DF(0.5DS,1IN 1D)
     Route: 048
     Dates: start: 20081223, end: 20090216
  4. GLUCOR [Suspect]
     Indication: DIABETES MELLITUS
     Route: 048
     Dates: start: 20081213, end: 20090325

REACTIONS (1)
  - THROMBOCYTOPENIA [None]
